FAERS Safety Report 6021175-7 (Version None)
Quarter: 2008Q4

REPORT INFORMATION
  Report Type: 
  Country: None (occurrence: None)
  Receive Date: 20081229
  Receipt Date: 20081217
  Transmission Date: 20090506
  Serious: Yes (Other)
  Sender: FDA-Public Use
  Company Number: JP-PFIZER INC-2008157134

PATIENT

DRUGS (9)
  1. NORVASC [Suspect]
     Dosage: 2.5 MG, 2X/DAY
     Route: 048
  2. ASPIRIN [Concomitant]
  3. VOLTAREN [Concomitant]
  4. MARZULENE [Concomitant]
  5. AM [Concomitant]
  6. MAGNESIUM OXIDE [Concomitant]
  7. LORAZEPAM [Concomitant]
  8. TAMBOCOR [Concomitant]
  9. LEUPROLIDE ACETATE [Concomitant]
     Route: 017

REACTIONS (1)
  - LOSS OF CONSCIOUSNESS [None]
